FAERS Safety Report 9512846 (Version 1)
Quarter: 2013Q1

REPORT INFORMATION
  Report Type: Spontaneous
  Country: US (occurrence: None)
  Receive Date: 20130305
  Receipt Date: 20130305
  Transmission Date: 20140127
  Serious: Yes (Hospitalization, Other)
  Sender: FDA-Public Use
  Company Number: 163-21880-12043221

PATIENT
  Age: 71 Year
  Sex: Female

DRUGS (13)
  1. REVLIMID [Suspect]
     Indication: PLASMA CELL MYELOMA
     Dosage: 21 IN 21 D
     Route: 048
     Dates: start: 20110505, end: 2011
  2. ACYCLOVIR (ACICLOVIR) (UNKNOWN) [Concomitant]
  3. ASPIRIN (ACTYLSALICYLIC ACID) (UNKNOWN) [Concomitant]
  4. BENADRYL ALLERGY (BENADRYL ALLERGY) (UNKNOWN) [Concomitant]
  5. CALCIUM (CALCIUM (UNKNOWN) [Concomitant]
  6. CARAFATE (SUCRALFATE) (UNKNOWN) [Concomitant]
  7. COLACE (DOCUSATE SODIUM) (UNKNOWN) [Concomitant]
  8. CYMBALTA (DULOXETINE HYDROCHLORIDE) (UNKNOWN) [Concomitant]
  9. DEXAMETHASONE (DEXAMETHASONE) (UNKNOWN) [Concomitant]
  10. VELCADE [Concomitant]
  11. ZOMETA (ZOLEDRONIC ACID) (UNKNOWN) [Concomitant]
  12. VITAMIN D (ERGOCALCIFEROL) (UNKNOWN) [Concomitant]
  13. PANCREASE MT 10 (PANCRELIPASE) (UNKNOWN) [Concomitant]

REACTIONS (3)
  - Neutropenia [None]
  - Platelet count decreased [None]
  - Plasma cell myeloma [None]
